FAERS Safety Report 6943077-1 (Version None)
Quarter: 2010Q3

REPORT INFORMATION
  Report Type: 
  Country: None (occurrence: None)
  Receive Date: 20100826
  Receipt Date: 20100824
  Transmission Date: 20110219
  Serious: Yes (Other)
  Sender: FDA-Public Use
  Company Number: US-BRISTOL-MYERS SQUIBB COMPANY-15252299

PATIENT
  Sex: Female

DRUGS (2)
  1. ONGLYZA [Suspect]
  2. ACTOS [Suspect]

REACTIONS (3)
  - BLOOD GLUCOSE ABNORMAL [None]
  - RASH [None]
  - SWOLLEN TONGUE [None]
